FAERS Safety Report 8154159-3 (Version None)
Quarter: 2012Q1

REPORT INFORMATION
  Report Type: 
  Country: None (occurrence: None)
  Receive Date: 20120221
  Receipt Date: 20120206
  Transmission Date: 20120608
  Serious: Yes (Disabling)
  Sender: FDA-Public Use
  Company Number: IT-CELGENEUS-083-21880-10111729

PATIENT
  Sex: Female
  Weight: 52 kg

DRUGS (9)
  1. DEXAMETHASONE SODIUM PHOSPHATE [Suspect]
     Indication: IMMUNOSUPPRESSION
  2. REVLIMID [Suspect]
     Indication: MULTIPLE MYELOMA
     Dosage: 25 MILLIGRAM
     Route: 048
     Dates: start: 20100129
  3. ENOXAPARIN SODIUM [Concomitant]
     Indication: THROMBOSIS
     Dosage: 4000 INTERNATIONAL UNITS THOUSANDS
     Route: 058
     Dates: start: 20100320, end: 20101122
  4. REVLIMID [Suspect]
     Dosage: 25 MILLIGRAM
     Route: 048
     Dates: start: 20100826, end: 20100916
  5. FUROSEMIDE [Concomitant]
     Dosage: 100 MILLIGRAM
     Route: 048
     Dates: start: 20100601
  6. DEXAMETHASONE SODIUM PHOSPHATE [Suspect]
     Indication: MULTIPLE MYELOMA
  7. PREGABALIN [Concomitant]
     Dosage: 50 MILLIGRAM
     Route: 048
     Dates: start: 20100504, end: 20101122
  8. PREGABALIN [Concomitant]
     Indication: CONVULSION
  9. DEXAMETHASONE SODIUM PHOSPHATE [Suspect]
     Indication: ANTIINFLAMMATORY THERAPY
     Dosage: 20 MILLIGRAM
     Route: 048
     Dates: start: 20100129, end: 20100830

REACTIONS (1)
  - EPILEPSY [None]
